FAERS Safety Report 8237259-9 (Version None)
Quarter: 2012Q1

REPORT INFORMATION
  Report Type: 
  Country: None (occurrence: None)
  Receive Date: 20120327
  Receipt Date: 20120327
  Transmission Date: 20120608
  Serious: No
  Sender: FDA-Public Use
  Company Number: None

PATIENT
  Age: 51 Year
  Sex: Female
  Weight: 63.502 kg

DRUGS (2)
  1. BUPROPION HCL [Suspect]
     Indication: POST-TRAUMATIC STRESS DISORDER
     Route: 048
     Dates: start: 20110115, end: 20120301
  2. BUPROPION HCL [Concomitant]
     Dosage: ONE
     Route: 048
     Dates: start: 20120117, end: 20120326

REACTIONS (3)
  - PRODUCT SUBSTITUTION ISSUE [None]
  - ECONOMIC PROBLEM [None]
  - DRUG INEFFECTIVE [None]
